FAERS Safety Report 23700511 (Version 1)
Quarter: 2024Q2

REPORT INFORMATION
  Report Type: Report from Study
  Country: ES (occurrence: ES)
  Receive Date: 20240403
  Receipt Date: 20240403
  Transmission Date: 20240717
  Serious: Yes (Other)
  Sender: FDA-Public Use
  Company Number: ES-EMA-DD-20240227-7482831-163720

PATIENT
  Sex: Male

DRUGS (19)
  1. BUSULFAN [Suspect]
     Active Substance: BUSULFAN
     Indication: Bone marrow conditioning regimen
     Dosage: UNK, DURING SECOND HSCT
  2. CLOFARABINE [Suspect]
     Active Substance: CLOFARABINE
     Indication: Acute lymphocytic leukaemia (in remission)
     Dosage: UNK, AS PER SHOP/ALL 2008 PROTOCOL
  3. ETOPOSIDE [Suspect]
     Active Substance: ETOPOSIDE
     Indication: Bone marrow conditioning regimen
     Dosage: UNK, AS PER SHOP/ALL 2008 PROTOCOL
  4. METHOTREXATE [Suspect]
     Active Substance: METHOTREXATE
     Indication: Prophylaxis against graft versus host disease
     Dosage: UNK
  5. MYCOPHENOLATE MOFETIL [Suspect]
     Active Substance: MYCOPHENOLATE MOFETIL
     Indication: Acute graft versus host disease
     Dosage: UNK
  6. FLUDARABINE [Suspect]
     Active Substance: FLUDARABINE PHOSPHATE
     Indication: Allogenic stem cell transplantation
     Dosage: REDUCED INTENSITY CONDITIONING
  7. CYCLOPHOSPHAMIDE [Suspect]
     Active Substance: CYCLOPHOSPHAMIDE
     Indication: Bone marrow conditioning regimen
     Dosage: UNK, AS PER SHOP/ALL 2008 PROTOCOL
  8. CYTARABINE [Suspect]
     Active Substance: CYTARABINE
     Indication: Acute lymphocytic leukaemia refractory
     Dosage: UNK, AS PER SHOP/ALL 2008 PROTOCOL
  9. RITUXIMAB [Suspect]
     Active Substance: RITUXIMAB
     Indication: Epstein-Barr virus infection reactivation
     Dosage: RECEIVED ON 2 OCCASIONS
  10. COTRIMOXAZOLE [Suspect]
     Active Substance: SULFAMETHOXAZOLE\TRIMETHOPRIM
     Indication: Antifungal prophylaxis
     Dosage: UNK, DURING SECOND PERIPHERAL BLOOD HSCT
  11. THIOTEPA [Suspect]
     Active Substance: THIOTEPA
     Indication: Allogenic stem cell transplantation
     Dosage: UNK, DURING SECOND PERIPHERAL BLOOD HSCT
  12. CYCLOSPORINE [Suspect]
     Active Substance: CYCLOSPORINE
     Indication: Prophylaxis against graft versus host disease
     Dosage: UNK, DURING SECOND PERIPHERAL BLOOD HSCT
  13. BUDESONIDE [Suspect]
     Active Substance: BUDESONIDE
     Indication: Acute graft versus host disease
     Dosage: UNK
  14. TACROLIMUS [Suspect]
     Active Substance: TACROLIMUS
     Indication: Acute graft versus host disease
     Dosage: UNK
  15. IMMUNE GLOBULIN NOS [Suspect]
     Active Substance: IMMUNE GLOBULIN NOS
     Indication: Hypogammaglobulinaemia
     Dosage: FROM THE FIRST TRANSPLANTATION AT INCREASING DOSES THAT WENT FROM 0.27 TO 0.66 G/KG EVERY 4 WEEKS
  16. SIROLIMUS [Suspect]
     Active Substance: SIROLIMUS
     Indication: Acute graft versus host disease
     Dosage: UNK
  17. FLUDARABINE [Suspect]
     Active Substance: FLUDARABINE PHOSPHATE
     Indication: Allogenic stem cell transplantation
     Dosage: UNK, DURING SECOND PERIPHERAL BLOOD HSCT
  18. CYCLOPHOSPHAMIDE [Suspect]
     Active Substance: CYCLOPHOSPHAMIDE
     Indication: Bone marrow conditioning regimen
     Dosage: DURING SECOND HSCT
  19. BUSULFAN [Suspect]
     Active Substance: BUSULFAN
     Indication: Bone marrow conditioning regimen
     Dosage: UNK, DURING SECOND PERIPHERAL BLOOD HSCT; DOSE-ADJUSTED

REACTIONS (3)
  - Acute graft versus host disease [Unknown]
  - Hypogammaglobulinaemia [Recovered/Resolved]
  - Epstein-Barr virus infection reactivation [Unknown]
